FAERS Safety Report 21479643 (Version 1)
Quarter: 2022Q4

REPORT INFORMATION
  Report Type: Spontaneous
  Country: US (occurrence: None)
  Receive Date: 20221018
  Receipt Date: 20221018
  Transmission Date: 20230113
  Serious: No
  Sender: FDA-Public Use
  Company Number: None

PATIENT
  Age: 75 Year
  Sex: Female

DRUGS (1)
  1. OPSUMIT [Suspect]
     Active Substance: MACITENTAN
     Indication: Pulmonary arterial hypertension
     Dosage: FREQUENCY : DAILY;?
     Route: 048
     Dates: start: 20170329

REACTIONS (6)
  - Dyspnoea [None]
  - Pulmonary oedema [None]
  - Tachypnoea [None]
  - Oxygen saturation abnormal [None]
  - Treatment noncompliance [None]
  - Refusal of treatment by patient [None]

NARRATIVE: CASE EVENT DATE: 20220909
